FAERS Safety Report 9370020 (Version 1)
Quarter: 2013Q2

REPORT INFORMATION
  Report Type: Spontaneous
  Country: US (occurrence: US)
  Receive Date: 20130626
  Receipt Date: 20130626
  Transmission Date: 20140414
  Serious: Yes (Death)
  Sender: FDA-Public Use
  Company Number: US-BAYER-2013-075975

PATIENT
  Sex: Female

DRUGS (1)
  1. NIMODIPINE [Suspect]
     Indication: SUBARACHNOID HAEMORRHAGE
     Dosage: 60 MG, Q4HR

REACTIONS (1)
  - Incorrect route of drug administration [Fatal]
